FAERS Safety Report 5035772-9 (Version None)
Quarter: 2006Q2

REPORT INFORMATION
  Report Type: 
  Country: None (occurrence: None)
  Receive Date: 20060526
  Receipt Date: 20051003
  Transmission Date: 20061013
  Serious: Yes (Hospitalization, Disabling, Other)
  Sender: FDA-Public Use
  Company Number: 05-000789

PATIENT
  Age: 21 Year
  Sex: Female
  Weight: 63.5 kg

DRUGS (2)
  1. OVCON-35 [Suspect]
     Indication: OVARIAN CYST
     Dosage: 35/400 UG, QD, ORAL
     Route: 048
     Dates: start: 20050601, end: 20050913
  2. NORTRIPTYLINE HCL [Suspect]
     Indication: MIGRAINE
     Dosage: 20 MG, HS, ORAL
     Route: 048
     Dates: start: 20050817, end: 20050913

REACTIONS (2)
  - CEREBROVASCULAR ACCIDENT [None]
  - MIGRAINE WITH AURA [None]
